FAERS Safety Report 11668951 (Version 5)
Quarter: 2015Q4

REPORT INFORMATION
  Report Type: Spontaneous
  Country: US (occurrence: US)
  Receive Date: 20151027
  Receipt Date: 20151231
  Transmission Date: 20160304
  Serious: No
  Sender: FDA-Public Use
  Company Number: US-PFIZER INC-2015363935

PATIENT
  Age: 74 Year
  Sex: Male

DRUGS (1)
  1. VIAGRA [Suspect]
     Active Substance: SILDENAFIL CITRATE
     Indication: DISTURBANCE IN SEXUAL AROUSAL
     Dosage: 100 MG, WEEKLY

REACTIONS (3)
  - Sensation of blood flow [Unknown]
  - Flushing [Recovered/Resolved]
  - Drug ineffective [Unknown]
